FAERS Safety Report 19385379 (Version 1)
Quarter: 2021Q2

REPORT INFORMATION
  Report Type: Spontaneous
  Country: JP (occurrence: JP)
  Receive Date: 20210608
  Receipt Date: 20210608
  Transmission Date: 20210717
  Serious: Yes (Other)
  Sender: FDA-Public Use
  Company Number: JP-LUPIN PHARMACEUTICALS INC.-2021-08832

PATIENT
  Sex: Female

DRUGS (14)
  1. POTASSIUM CHLORIDE. [Suspect]
     Active Substance: POTASSIUM CHLORIDE
     Indication: AUTONOMIC SEIZURE
     Dosage: UNK
     Route: 065
  2. CARBAMAZEPINE. [Suspect]
     Active Substance: CARBAMAZEPINE
     Indication: AUTONOMIC SEIZURE
     Dosage: UNK
     Route: 065
  3. POTASSIUM CHLORIDE. [Suspect]
     Active Substance: POTASSIUM CHLORIDE
     Indication: ALEXANDER DISEASE
  4. CLOBAZAM. [Suspect]
     Active Substance: CLOBAZAM
     Indication: ALEXANDER DISEASE
  5. VALPROATE [Suspect]
     Active Substance: VALPROIC ACID
     Indication: ALEXANDER DISEASE
  6. PHENOBARBITAL. [Suspect]
     Active Substance: PHENOBARBITAL
     Indication: ALEXANDER DISEASE
  7. PHENYTOIN SODIUM. [Suspect]
     Active Substance: PHENYTOIN SODIUM
     Indication: ALEXANDER DISEASE
  8. CARBAMAZEPINE. [Suspect]
     Active Substance: CARBAMAZEPINE
     Indication: ALEXANDER DISEASE
  9. PHENYTOIN SODIUM. [Suspect]
     Active Substance: PHENYTOIN SODIUM
     Indication: AUTONOMIC SEIZURE
     Dosage: UNK
     Route: 065
  10. LEVETIRACETAM. [Suspect]
     Active Substance: LEVETIRACETAM
     Indication: AUTONOMIC SEIZURE
     Dosage: UNK
     Route: 065
  11. VALPROATE [Suspect]
     Active Substance: VALPROIC ACID
     Indication: AUTONOMIC SEIZURE
     Dosage: UNK
     Route: 065
  12. LEVETIRACETAM. [Suspect]
     Active Substance: LEVETIRACETAM
     Indication: ALEXANDER DISEASE
  13. CLOBAZAM. [Suspect]
     Active Substance: CLOBAZAM
     Indication: AUTONOMIC SEIZURE
     Dosage: UNK
     Route: 065
  14. PHENOBARBITAL. [Suspect]
     Active Substance: PHENOBARBITAL
     Indication: AUTONOMIC SEIZURE
     Dosage: UNK
     Route: 065

REACTIONS (1)
  - Drug ineffective [Unknown]
